FAERS Safety Report 9507378 (Version 1)
Quarter: 2013Q1

REPORT INFORMATION
  Report Type: Spontaneous
  Country: US (occurrence: None)
  Receive Date: 20130305
  Receipt Date: 20130305
  Transmission Date: 20140127
  Serious: Yes (Hospitalization)
  Sender: FDA-Public Use
  Company Number: 163-21880-12021466

PATIENT
  Age: 76 Year
  Sex: Female

DRUGS (18)
  1. REVLIMID [Suspect]
     Indication: PLASMA CELL MYELOMA
     Dosage: 10 MG, DAILY FOR 21 DAYS /28D
     Route: 048
     Dates: start: 20110826
  2. DEXAMETHASONE (DEXAMETHASONE) (UNKNOWN) [Concomitant]
  3. LANTUS (INSULIN GLARGINE) (UNKNOWN) [Concomitant]
  4. HUMULIN R (INSULIN HUMAN) (UNKNOWN) [Concomitant]
  5. PROVENTIL (SALBUTAMOL) (UNKNOWN) [Concomitant]
  6. PRILOSEC (OMEPRAZOLE) (UNKNOWN) [Concomitant]
  7. FLOMAX (TAMSULOSIN HYDROCHLORIDE) (UNKNOWN) [Concomitant]
  8. ZETIA (EZETIMIBE ) (UNKNOWN) [Concomitant]
  9. ZOFRAN (ONDANSETRON HYDROCHLORIDE) (UNKNOWN) [Concomitant]
  10. TYLENOL (PARACETAMOL) (UNKNOWN) [Concomitant]
  11. ROBITUSSIN DM (TUSSIN DM) (UNKNOWN) [Concomitant]
  12. MYLANTA (MYLANTA) (UNKNOWN) [Concomitant]
  13. FLEETS ENEMA (FLEET ENEMA) (UNKNOWN) [Concomitant]
  14. DULCOLAX (BISACODYL) (UNKNOWN) [Concomitant]
  15. MILK OF MAGNESIA (MAGNESIUM HYDROXIDE) (UNKNOWN) [Concomitant]
  16. LEVAQUIN (LEVOFLOXACIN) (UNKNOWN) [Concomitant]
  17. EMPIRIC ANTIBIOTICS (ANTIBIOTICS) (UNKNOWN) [Concomitant]
  18. PROTONIX (UNKNOWN) [Concomitant]

REACTIONS (2)
  - Pulmonary embolism [None]
  - Thrombosis [None]
